FAERS Safety Report 5812088-1 (Version None)
Quarter: 2008Q3

REPORT INFORMATION
  Report Type: 
  Country: None (occurrence: None)
  Receive Date: 20080716
  Receipt Date: 20080624
  Transmission Date: 20090109
  Serious: No
  Sender: FDA-Public Use
  Company Number: US-BOEHRINGER INGELHEIM GMBH, GERMANY-2008-BP-09797BP

PATIENT
  Sex: Male

DRUGS (3)
  1. SPIRIVA [Suspect]
     Route: 055
     Dates: start: 20080620, end: 20080620
  2. VISTARIL [Concomitant]
  3. CHOLESTEROL MED [Concomitant]

REACTIONS (5)
  - AGITATION [None]
  - ANXIETY [None]
  - DEPRESSION [None]
  - DIARRHOEA [None]
  - HEADACHE [None]
